FAERS Safety Report 6643810-2 (Version None)
Quarter: 2010Q1

REPORT INFORMATION
  Report Type: 
  Country: None (occurrence: None)
  Receive Date: 20100322
  Receipt Date: 20100315
  Transmission Date: 20100710
  Serious: Yes (Death, Hospitalization)
  Sender: FDA-Public Use
  Company Number: FR-JNJFOC-20100209500

PATIENT
  Sex: Male

DRUGS (3)
  1. HALDOL [Suspect]
     Indication: AGGRESSION
     Route: 048
  2. HALDOL [Suspect]
     Route: 048
  3. DEROXAT [Concomitant]
     Route: 065

REACTIONS (10)
  - AGGRESSION [None]
  - ANTICHOLINERGIC SYNDROME [None]
  - CONSTIPATION [None]
  - EXTRAPYRAMIDAL DISORDER [None]
  - FAECALITH [None]
  - HYPONATRAEMIA [None]
  - OVERDOSE [None]
  - PULMONARY EMBOLISM [None]
  - SEPTIC SHOCK [None]
  - URINARY RETENTION [None]
